FAERS Safety Report 15292776 (Version 2)
Quarter: 2018Q4

REPORT INFORMATION
  Report Type: Spontaneous
  Country: JP (occurrence: JP)
  Receive Date: 20180819
  Receipt Date: 20181102
  Transmission Date: 20190204
  Serious: Yes (Hospitalization)
  Sender: FDA-Public Use
  Company Number: JP-SHIRE-JP201815892

PATIENT

DRUGS (9)
  1. CALCIUM CARBONATE. [Concomitant]
     Active Substance: CALCIUM CARBONATE
     Indication: HYPERPHOSPHATAEMIA
  2. BISOPROLOL FUMARATE. [Concomitant]
     Active Substance: BISOPROLOL FUMARATE
     Indication: HYPERTENSION
  3. OXYGEN. [Concomitant]
     Active Substance: OXYGEN
     Indication: DYSPNOEA
  4. AMITIZA [Concomitant]
     Active Substance: LUBIPROSTONE
     Indication: CONSTIPATION
  5. YOKUKANSAN [Concomitant]
     Active Substance: HERBALS
     Indication: DEMENTIA
  6. OXYGEN. [Concomitant]
     Active Substance: OXYGEN
     Indication: EMPHYSEMA
  7. FOSRENOL [Suspect]
     Active Substance: LANTHANUM CARBONATE
     Indication: HYPERPHOSPHATAEMIA
     Dosage: UNK
     Route: 048
     Dates: start: 2006, end: 20180417
  8. ROZEREM [Concomitant]
     Active Substance: RAMELTEON
     Indication: INSOMNIA
  9. AIMIX [Concomitant]
     Active Substance: AMLODIPINE BESYLATE\IRBESARTAN
     Indication: HYPERTENSION

REACTIONS (6)
  - Depressed mood [Recovering/Resolving]
  - Dyspnoea [Recovered/Resolved]
  - Restlessness [Unknown]
  - Hypercapnia [Recovering/Resolving]
  - Anxiety [Recovering/Resolving]
  - Product residue present [Unknown]

NARRATIVE: CASE EVENT DATE: 2018
